FAERS Safety Report 9473455 (Version 1)
Quarter: 2013Q3

REPORT INFORMATION
  Report Type: Spontaneous
  Country: US (occurrence: US)
  Receive Date: 20130823
  Receipt Date: 20130823
  Transmission Date: 20140515
  Serious: Yes (Other)
  Sender: FDA-Public Use
  Company Number: US-BRISTOL-MYERS SQUIBB COMPANY-19006758

PATIENT
  Age: 79 Year
  Sex: Male
  Weight: 76.19 kg

DRUGS (8)
  1. SPRYCEL [Suspect]
     Indication: CHRONIC MYELOID LEUKAEMIA
     Dosage: TABS
  2. TASIGNA [Suspect]
  3. SULINDAC [Concomitant]
     Indication: GOUT
  4. LOVASTATIN [Concomitant]
  5. DILTIAZEM ER [Concomitant]
  6. VITAMIN D3 [Concomitant]
  7. ALLOPURINOL [Concomitant]
  8. OMEPRAZOLE [Concomitant]

REACTIONS (2)
  - Pleural effusion [Unknown]
  - Swelling [Unknown]
